FAERS Safety Report 14882486 (Version 15)
Quarter: 2018Q3

REPORT INFORMATION
  Report Type: Spontaneous
  Country: CA (occurrence: CA)
  Receive Date: 20180511
  Receipt Date: 20180913
  Transmission Date: 20181010
  Serious: Yes (Other)
  Sender: FDA-Public Use
  Company Number: CA-CELLTRION INC.-2017CA017688

PATIENT

DRUGS (16)
  1. INFLECTRA [Suspect]
     Active Substance: INFLIXIMAB-DYYB
     Dosage: 10MG/KG CYCLIC (EVERY 8 WEEKS)
     Route: 042
     Dates: start: 201712
  2. ATORVASTATIN [Concomitant]
     Active Substance: ATORVASTATIN
     Dosage: UNK
  3. INFLECTRA [Suspect]
     Active Substance: INFLIXIMAB-DYYB
     Dosage: 400 MG,/Q  0,2,6 WEEKS, THEN EVERY 8 WEEKS)
     Route: 042
     Dates: start: 20180312
  4. INFLECTRA [Suspect]
     Active Substance: INFLIXIMAB-DYYB
     Dosage: 400 MG,/Q  0,2,6 WEEKS, THEN EVERY 8 WEEKS)
     Route: 042
     Dates: start: 20180312
  5. INFLECTRA [Suspect]
     Active Substance: INFLIXIMAB-DYYB
     Dosage: 800 MG,CYCLIC EVERY 8 WEEKS;
     Route: 042
     Dates: start: 20180829
  6. RAMIPRIL. [Concomitant]
     Active Substance: RAMIPRIL
     Dosage: UNK
  7. VITAMIN B12 [Concomitant]
     Active Substance: CYANOCOBALAMIN
     Dosage: UNK
  8. INFLECTRA [Suspect]
     Active Substance: INFLIXIMAB-DYYB
     Dosage: 400 MG (BOOSTER DOSE)
     Route: 042
     Dates: start: 20180528, end: 20180528
  9. INFLECTRA [Suspect]
     Active Substance: INFLIXIMAB-DYYB
     Dosage: 800 MG, EVERY 8 WEEKS;
     Route: 042
     Dates: start: 20180704
  10. INFLECTRA [Suspect]
     Active Substance: INFLIXIMAB-DYYB
     Dosage: 400 MG, 0,2,6 WEEKS, THEN EVERY 8 WEEKS)
     Route: 042
     Dates: start: 20180115
  11. INFLECTRA [Suspect]
     Active Substance: INFLIXIMAB-DYYB
     Dosage: 400 MG BOOSTER DOSE
     Route: 042
     Dates: start: 20180528, end: 20180528
  12. METOPROLOL. [Concomitant]
     Active Substance: METOPROLOL
     Dosage: UNK
  13. INFLECTRA [Suspect]
     Active Substance: INFLIXIMAB-DYYB
     Indication: CROHN^S DISEASE
     Dosage: 400 MG,  0,2,6 WEEKS, THEN EVERY 8 WEEKS)
     Route: 042
     Dates: start: 20171207
  14. CALPROTECTIN [Concomitant]
  15. METHOTREXATE. [Concomitant]
     Active Substance: METHOTREXATE
     Dosage: 6 TABS WEEKLY
  16. INFLECTRA [Suspect]
     Active Substance: INFLIXIMAB-DYYB
     Dosage: 400 MG, 0,2,6 WEEKS, THEN EVERY 8 WEEKS)
     Route: 042
     Dates: start: 20180507, end: 20180507

REACTIONS (11)
  - Drug level below therapeutic [Recovering/Resolving]
  - Faecal calprotectin increased [Unknown]
  - Infected dermal cyst [Not Recovered/Not Resolved]
  - Inappropriate schedule of drug administration [Unknown]
  - Anorectal disorder [Unknown]
  - Extra dose administered [Unknown]
  - Anal fistula [Unknown]
  - Condition aggravated [Recovering/Resolving]
  - Weight decreased [Unknown]
  - Proctalgia [Unknown]
  - Drug effect incomplete [Recovering/Resolving]

NARRATIVE: CASE EVENT DATE: 201712
